FAERS Safety Report 7118976-0 (Version None)
Quarter: 2010Q4

REPORT INFORMATION
  Report Type: 
  Country: None (occurrence: None)
  Receive Date: 20101123
  Receipt Date: 20101116
  Transmission Date: 20110411
  Serious: Yes (Hospitalization)
  Sender: FDA-Public Use
  Company Number: A0730953A

PATIENT
  Age: 24 Year
  Sex: Female
  Weight: 104.5 kg

DRUGS (3)
  1. AVANDIA [Suspect]
     Route: 048
     Dates: start: 20030901, end: 20070827
  2. AVANDAMET [Suspect]
     Route: 048
     Dates: start: 20060215, end: 20060317
  3. GLUCOTROL XL [Concomitant]
     Dates: start: 20040101, end: 20080401

REACTIONS (3)
  - CEREBROVASCULAR ACCIDENT [None]
  - DISABILITY [None]
  - HEMIPARESIS [None]
